FAERS Safety Report 20311498 (Version 1)
Quarter: 2022Q1

REPORT INFORMATION
  Report Type: Other
  Country: FR (occurrence: FR)
  Receive Date: 20220108
  Receipt Date: 20220108
  Transmission Date: 20220423
  Serious: Yes (Hospitalization)
  Sender: FDA-Public Use
  Company Number: None

PATIENT

DRUGS (2)
  1. IRBESARTAN [Suspect]
     Active Substance: IRBESARTAN
     Indication: Hypertension
     Dosage: 150 MILLIGRAM
     Route: 048
     Dates: end: 20210317
  2. ALFACALCIDOL [Suspect]
     Active Substance: ALFACALCIDOL
     Indication: Post procedural hypoparathyroidism
     Dosage: 2 MICROGRAM
     Route: 048
     Dates: start: 1991

REACTIONS (2)
  - Hypercalcaemia [Recovered/Resolved]
  - Prerenal failure [Recovered/Resolved]

NARRATIVE: CASE EVENT DATE: 20210301
